FAERS Safety Report 21351828 (Version 2)
Quarter: 2024Q3

REPORT INFORMATION
  Report Type: Report from Study
  Country: CA (occurrence: CA)
  Receive Date: 20220919
  Receipt Date: 20240729
  Transmission Date: 20241016
  Serious: Yes (Other)
  Sender: AMGEN
  Company Number: CA-002147023-NVSC2019CA060069

PATIENT
  Age: 42 Year
  Sex: Female

DRUGS (1)
  1. AIMOVIG [Suspect]
     Active Substance: ERENUMAB-AOOE
     Indication: Migraine
     Dosage: UNK
     Route: 065
     Dates: start: 20190618

REACTIONS (3)
  - Breast cancer female [Unknown]
  - COVID-19 [Unknown]
  - Migraine [Unknown]

NARRATIVE: CASE EVENT DATE: 20191109
